FAERS Safety Report 7581391-X (Version None)
Quarter: 2011Q2

REPORT INFORMATION
  Report Type: 
  Country: None (occurrence: None)
  Receive Date: 20110629
  Receipt Date: 20110620
  Transmission Date: 20111010
  Serious: Yes (Hospitalization, Other)
  Sender: FDA-Public Use
  Company Number: US-ASTRAZENECA-2010SE42649

PATIENT
  Age: 51 Year
  Sex: Female

DRUGS (1)
  1. NEXIUM [Suspect]
     Route: 048

REACTIONS (5)
  - PNEUMONIA [None]
  - INTENTIONAL DRUG MISUSE [None]
  - MALAISE [None]
  - DRUG DOSE OMISSION [None]
  - MYOCARDIAL INFARCTION [None]
